FAERS Safety Report 20628235 (Version 1)
Quarter: 2022Q1

REPORT INFORMATION
  Report Type: Other
  Country: US (occurrence: None)
  Receive Date: 20220323
  Receipt Date: 20220323
  Transmission Date: 20220423
  Serious: No
  Sender: FDA-Public Use
  Company Number: US-ROCHE-3055535

PATIENT
  Age: 38 Year
  Sex: Female
  Weight: 72.640 kg

DRUGS (2)
  1. OCREVUS [Suspect]
     Active Substance: OCRELIZUMAB
     Indication: Relapsing-remitting multiple sclerosis
     Dosage: DATE OF TREATMENT:  18/MAR/2021, 04/MAR/2021
     Route: 042
     Dates: start: 202103, end: 202103
  2. OCREVUS [Suspect]
     Active Substance: OCRELIZUMAB
     Indication: Demyelination
     Route: 042
     Dates: start: 20210916

REACTIONS (6)
  - COVID-19 [Not Recovered/Not Resolved]
  - Pain [Not Recovered/Not Resolved]
  - Fatigue [Not Recovered/Not Resolved]
  - Hot flush [Recovered/Resolved]
  - Flushing [Recovered/Resolved]
  - Decreased appetite [Recovered/Resolved]

NARRATIVE: CASE EVENT DATE: 20210301
